FAERS Safety Report 6703498-9 (Version None)
Quarter: 2010Q2

REPORT INFORMATION
  Report Type: 
  Country: None (occurrence: None)
  Receive Date: 20100423
  Receipt Date: 20081104
  Transmission Date: 20101027
  Serious: Yes (Other)
  Sender: FDA-Public Use
  Company Number: ALL1-2008-03210

PATIENT
  Age: 9 Year
  Sex: Female

DRUGS (1)
  1. VYVANSE [Suspect]
     Indication: ATTENTION DEFICIT/HYPERACTIVITY DISORDER
     Dosage: MG, 1X/DAY;QD, ORAL
     Route: 048
     Dates: start: 20081018

REACTIONS (4)
  - DECREASED APPETITE [None]
  - EAR PAIN [None]
  - INSOMNIA [None]
  - SYNCOPE [None]
